FAERS Safety Report 4469957-7 (Version None)
Quarter: 2004Q3

REPORT INFORMATION
  Report Type: 
  Country: None (occurrence: None)
  Receive Date: 20040920
  Receipt Date: 20040726
  Transmission Date: 20050211
  Serious: No
  Sender: FDA-Public Use
  Company Number: A-US2004-06970

PATIENT
  Age: 67 Year
  Sex: Male

DRUGS (13)
  1. TRACLEER [Suspect]
     Indication: PULMONARY HYPERTENSION
     Dosage: 62.5 MG, BID, ORAL
     Route: 048
     Dates: start: 20040601
  2. LASIX [Concomitant]
  3. POTASSIUM (POTASSIUM) [Concomitant]
  4. STOOL SOFTENER (DOCUSATE SODIUM) [Concomitant]
  5. ATENOLOL [Concomitant]
  6. IMDUR [Concomitant]
  7. ENALAPRIL MALEATE [Concomitant]
  8. ALLOPURINOL [Concomitant]
  9. ZAROXYLIN (METOLAZONE) [Concomitant]
  10. COUMDIN (WARFARIN SODIUM) [Concomitant]
  11. ZANTAC [Concomitant]
  12. ALDACTONE [Concomitant]
  13. XANAX [Concomitant]

REACTIONS (2)
  - PAIN IN EXTREMITY [None]
  - SLEEP DISORDER [None]
